FAERS Safety Report 11492988 (Version 2)
Quarter: 2016Q1

REPORT INFORMATION
  Report Type: Report from Study
  Country: ES (occurrence: ES)
  Receive Date: 20150911
  Receipt Date: 20160209
  Transmission Date: 20160525
  Serious: Yes (Death)
  Sender: FDA-Public Use
  Company Number: ES-ROCHE-1630068

PATIENT
  Age: 62 Year
  Sex: Male
  Weight: 70 kg

DRUGS (7)
  1. FOLINIC ACID [Suspect]
     Active Substance: LEUCOVORIN
     Indication: COLORECTAL CANCER
     Dosage: DATE OF LAST DOSE 768 MG PRIOR TO SAE: 12/AUG/2015?CYCLE 2
     Route: 042
     Dates: start: 20150727
  2. FLUOROURACIL. [Suspect]
     Active Substance: FLUOROURACIL
     Indication: COLORECTAL CANCER
     Dosage: DATE OF LAST DOSE 765 MG AND 4608 MG PRIOR TO SAE: 12/AUG/2015?CYCLE 2
     Route: 042
     Dates: start: 20150727
  3. FLUOROURACIL. [Suspect]
     Active Substance: FLUOROURACIL
     Dosage: DTAE OF LAST DOSE PRIOR TO SAE: 12/AUG/2015
     Route: 042
     Dates: start: 20150727
  4. OMEPRAZOLE. [Concomitant]
     Active Substance: OMEPRAZOLE
     Route: 048
     Dates: end: 20150815
  5. BEVACIZUMAB [Suspect]
     Active Substance: BEVACIZUMAB
     Indication: COLORECTAL CANCER
     Dosage: DATE OF LAST DOSE365 MG PRIOR TO SAE: 12/AUG/2015?CYCLE 2
     Route: 042
     Dates: start: 20150727
  6. DEXAMETHASONE. [Concomitant]
     Active Substance: DEXAMETHASONE
     Route: 048
     Dates: end: 20150815
  7. OXALIPLATIN. [Suspect]
     Active Substance: OXALIPLATIN
     Indication: COLORECTAL CANCER
     Dosage: DATE OF LAST DOSE 163.2 MG PRIOR TO ASE:12/AUG/2015?CYCLE 2
     Route: 042
     Dates: start: 20150727

REACTIONS (1)
  - Intestinal perforation [Fatal]

NARRATIVE: CASE EVENT DATE: 20150815
